FAERS Safety Report 7739702 (Version 5)
Quarter: 2013Q2

REPORT INFORMATION
  Report Type: Spontaneous
  Country: US (occurrence: US)
  Receive Date: 20101227
  Receipt Date: 20130627
  Transmission Date: 20140414
  Serious: Yes (Other)
  Sender: FDA-Public Use
  Company Number: US-JNJFOC-20100807775

PATIENT
  Age: 52 Year
  Sex: Male

DRUGS (4)
  1. LEVAQUIN [Suspect]
     Indication: BRONCHITIS
     Route: 048
     Dates: start: 200101, end: 200805
  2. LEVAQUIN [Suspect]
     Indication: PNEUMONIA
     Route: 048
     Dates: start: 200101, end: 200805
  3. LEVAQUIN [Suspect]
     Indication: PNEUMONIA
     Route: 042
  4. CIPROFLOXACIN [Suspect]
     Indication: PRODUCT USED FOR UNKNOWN INDICATION
     Route: 065

REACTIONS (13)
  - Tendon rupture [Unknown]
  - Rotator cuff syndrome [Recovering/Resolving]
  - Tendon rupture [Recovering/Resolving]
  - Tendon rupture [Unknown]
  - Meniscus injury [Recovering/Resolving]
  - Rotator cuff syndrome [Recovering/Resolving]
  - Carpal tunnel syndrome [Recovering/Resolving]
  - Tenosynovitis [Unknown]
  - Tenosynovitis [Unknown]
  - Synovitis [Unknown]
  - Myalgia [Unknown]
  - Anxiety [Unknown]
  - Tendon disorder [Unknown]
